FAERS Safety Report 15720229 (Version 1)
Quarter: 2018Q4

REPORT INFORMATION
  Report Type: Report from Study
  Country: BR (occurrence: BR)
  Receive Date: 20181213
  Receipt Date: 20181213
  Transmission Date: 20190205
  Serious: Yes (Hospitalization)
  Sender: FDA-Public Use
  Company Number: PHHY2018BR183444

PATIENT
  Sex: Female
  Weight: 38 kg

DRUGS (2)
  1. EXELON PATCH [Suspect]
     Active Substance: RIVASTIGMINE
     Indication: DEMENTIA
     Dosage: 9.5 MG, QD PATCH 10 (CM2)
     Route: 062
  2. EXELON PATCH [Suspect]
     Active Substance: RIVASTIGMINE
     Indication: MEMORY IMPAIRMENT
     Dosage: 4.6 MG, QD PATCH 5 (CM2)
     Route: 062

REACTIONS (11)
  - Infection [Recovering/Resolving]
  - Oxygen saturation decreased [Recovering/Resolving]
  - Spinal disorder [Recovering/Resolving]
  - Pain [Recovering/Resolving]
  - Nosocomial infection [Recovering/Resolving]
  - Viral infection [Recovering/Resolving]
  - Pyrexia [Recovering/Resolving]
  - Bacterial infection [Recovering/Resolving]
  - Eye disorder [Recovering/Resolving]
  - Speech disorder [Recovering/Resolving]
  - Nephrolithiasis [Recovering/Resolving]
